FAERS Safety Report 5417915-8 (Version None)
Quarter: 2007Q3

REPORT INFORMATION
  Report Type: 
  Country: None (occurrence: None)
  Receive Date: 20070815
  Receipt Date: 20070723
  Transmission Date: 20080115
  Serious: Yes (Death, Hospitalization)
  Sender: FDA-Public Use
  Company Number: 6036016

PATIENT
  Age: 55 Year
  Sex: Female

DRUGS (6)
  1. EUTHYROX (TABLET) (LEVOTHYROXINE SODIUM) [Suspect]
     Indication: COMPLETED SUICIDE
     Dosage: 20 TABLETS (75 MCG, 1 IN 1 ONCE) ORAL
     Route: 048
  2. EUTHYROX (TABLET) (LEVOTHYROXINE SODIUM) [Suspect]
     Indication: DRUG USE FOR UNKNOWN INDICATION
     Dosage: 20 TABLETS (75 MCG, 1 IN 1 ONCE) ORAL
     Route: 048
  3. DICLOFENAC SODIUM [Suspect]
     Indication: COMPLETED SUICIDE
     Dosage: SEVERAL TABLETS TAKEN 3 DAYS PRIOR TO ADMISSION (1 IN 1 ONCE) ORAL
     Route: 048
  4. DICLOFENAC SODIUM [Suspect]
     Indication: DRUG USE FOR UNKNOWN INDICATION
     Dosage: SEVERAL TABLETS TAKEN 3 DAYS PRIOR TO ADMISSION (1 IN 1 ONCE) ORAL
     Route: 048
  5. ISOPTIN [Suspect]
     Indication: COMPLETED SUICIDE
     Dosage: 100 TABLETS (120 MG, 1 IN 1 ONCE) ORAL
     Route: 048
  6. ISOPTIN [Suspect]
     Indication: DRUG USE FOR UNKNOWN INDICATION
     Dosage: 100 TABLETS (120 MG, 1 IN 1 ONCE) ORAL
     Route: 048

REACTIONS (17)
  - ANURIA [None]
  - COMPLETED SUICIDE [None]
  - DRUG TOXICITY [None]
  - FALL [None]
  - GASTRIC HAEMORRHAGE [None]
  - GASTRIC ULCER [None]
  - HAEMATOMA [None]
  - HAEMOGLOBIN DECREASED [None]
  - MELAENA [None]
  - MULTI-ORGAN FAILURE [None]
  - MULTIPLE DRUG OVERDOSE INTENTIONAL [None]
  - MYDRIASIS [None]
  - PROTHROMBIN LEVEL DECREASED [None]
  - PROTHROMBIN TIME PROLONGED [None]
  - PUPILLARY LIGHT REFLEX TESTS ABNORMAL [None]
  - PYREXIA [None]
  - SHOCK [None]
